FAERS Safety Report 5071841-5 (Version None)
Quarter: 2006Q3

REPORT INFORMATION
  Report Type: 
  Country: None (occurrence: None)
  Receive Date: 20060801
  Receipt Date: 20060726
  Transmission Date: 20061208
  Serious: Yes (Hospitalization)
  Sender: FDA-Public Use
  Company Number: 200610667BFR

PATIENT
  Age: 45 Year
  Sex: Female

DRUGS (16)
  1. NIMOTOP [Suspect]
     Dosage: INTRAVENOUS
     Route: 042
     Dates: start: 20060619, end: 20060624
  2. IOMERON (IOMEPROL) [Suspect]
     Dosage: 80 ML TOTAL DAILY INTRAVENOUS
     Route: 042
     Dates: start: 20060619, end: 20060624
  3. VISIPAQUE [Suspect]
     Dosage: 150 ML TOTAL DAILY INTRAVENOUS
     Route: 042
     Dates: start: 20060619, end: 20060623
  4. MORPHINE [Concomitant]
  5. HEPARIN [Concomitant]
  6. LOVENOX [Concomitant]
  7. ORGARAN [Concomitant]
  8. ACETAMINOPHEN [Concomitant]
  9. ACUPAN [Concomitant]
  10. ZOPHREN [Concomitant]
  11. OMEPRAZOLE [Concomitant]
  12. CERNEVIT [SEE IMAGE] [Concomitant]
  13. DIPRIVAN [Concomitant]
  14. MANNITOL [Concomitant]
  15. TRANXENE [Concomitant]
  16. ALMOGRAN [Concomitant]

REACTIONS (1)
  - ACUTE GENERALISED EXANTHEMATOUS PUSTULOSIS [None]
